FAERS Safety Report 9645989 (Version 2)
Quarter: 2013Q4

REPORT INFORMATION
  Report Type: Spontaneous
  Country: GB (occurrence: GB)
  Receive Date: 20131025
  Receipt Date: 20131104
  Transmission Date: 20140711
  Serious: Yes (Death)
  Sender: FDA-Public Use
  Company Number: GB-GLAXOSMITHKLINE-B0931829A

PATIENT
  Age: 51 Year
  Sex: Female
  Weight: 70 kg

DRUGS (3)
  1. LAPATINIB [Suspect]
     Indication: HER-2 POSITIVE BREAST CANCER
     Dosage: 1250MG PER DAY
     Route: 048
     Dates: start: 20130815, end: 20130915
  2. CAPECITABINE [Suspect]
     Indication: BREAST CANCER RECURRENT
     Dosage: 3300MG PER DAY
     Route: 048
     Dates: start: 20130815, end: 20130915
  3. TRASTUZUMAB [Concomitant]
     Route: 065

REACTIONS (2)
  - Colitis ischaemic [Not Recovered/Not Resolved]
  - Gastrointestinal necrosis [Fatal]
